FAERS Safety Report 19402594 (Version 1)
Quarter: 2021Q2

REPORT INFORMATION
  Report Type: Spontaneous
  Country: AR (occurrence: AR)
  Receive Date: 20210610
  Receipt Date: 20210610
  Transmission Date: 20210717
  Serious: Yes (Other)
  Sender: FDA-Public Use
  Company Number: AR-PFIZER INC-2021619491

PATIENT
  Age: 60 Year
  Sex: Male

DRUGS (1)
  1. SUTENT [Suspect]
     Active Substance: SUNITINIB MALATE
     Indication: METASTATIC RENAL CELL CARCINOMA
     Dosage: 50 MG, CYCLIC (DAILY, SCHEME 4/2 REST)
     Dates: start: 20210428

REACTIONS (7)
  - Pain [Unknown]
  - Pelvic bone injury [Unknown]
  - Chest injury [Unknown]
  - Gait inability [Unknown]
  - Back injury [Unknown]
  - Dry skin [Unknown]
  - Spinal column injury [Unknown]
